FAERS Safety Report 25028630 (Version 2)
Quarter: 2025Q1

REPORT INFORMATION
  Report Type: Spontaneous
  Country: JP (occurrence: JP)
  Receive Date: 20250302
  Receipt Date: 20250320
  Transmission Date: 20250408
  Serious: Yes (Death, Hospitalization)
  Sender: NOVARTIS
  Company Number: JP-002147023-NVSJ2025JP002685

PATIENT
  Age: 85 Year
  Sex: Male

DRUGS (3)
  1. TABRECTA [Suspect]
     Active Substance: CAPMATINIB
     Indication: Lung neoplasm malignant
     Dosage: UNK, BID
     Route: 048
     Dates: start: 20241129
  2. TABRECTA [Suspect]
     Active Substance: CAPMATINIB
     Dosage: UNK, BID, 1-LEVEL DOSE REDUCTION
     Route: 048
     Dates: end: 20250105
  3. TABRECTA [Suspect]
     Active Substance: CAPMATINIB
     Route: 048
     Dates: start: 20250106, end: 20250106

REACTIONS (4)
  - Lung neoplasm malignant [Fatal]
  - Decreased appetite [Fatal]
  - Malignant neoplasm progression [Fatal]
  - Interstitial lung disease [Recovering/Resolving]

NARRATIVE: CASE EVENT DATE: 20250106
